FAERS Safety Report 15836760 (Version 3)
Quarter: 2019Q1

REPORT INFORMATION
  Report Type: Spontaneous
  Country: JP (occurrence: JP)
  Receive Date: 20190117
  Receipt Date: 20190213
  Transmission Date: 20190417
  Serious: Yes (Death)
  Sender: FDA-Public Use
  Company Number: JP-ELI_LILLY_AND_COMPANY-JP201901006969

PATIENT
  Age: 69 Year
  Sex: Male

DRUGS (13)
  1. FOSRENOL OD [Concomitant]
     Dosage: 1500 MG, DAILY
     Route: 048
  2. LAC B [Concomitant]
     Active Substance: BIFIDOBACTERIUM SPP.
     Dosage: 6 G, DAILY
  3. BISOPROLOL [Concomitant]
     Active Substance: BISOPROLOL
     Dosage: 1.25 MG, DAILY
  4. MONTELUKAST [Concomitant]
     Active Substance: MONTELUKAST SODIUM
     Dosage: 10 MG, DAILY
  5. TRULICITY [Suspect]
     Active Substance: DULAGLUTIDE
     Indication: TYPE 2 DIABETES MELLITUS
     Dosage: 0.75 MG, WEEKLY (1/W)
     Route: 058
  6. BAYASPIRIN [Concomitant]
     Active Substance: ASPIRIN
     Dosage: 100 MG, DAILY
     Route: 048
  7. TAKECAB [Concomitant]
     Active Substance: VONOPRAZAN FUMURATE
     Dosage: 10 MG, DAILY
     Route: 048
  8. CALTAN [Concomitant]
     Active Substance: CALCIUM CARBONATE
     Dosage: 1000 MG, DAILY
  9. GASCON [Concomitant]
     Active Substance: DIMETHICONE
     Dosage: 80 MG, DAILY
  10. AMIODARONE [Concomitant]
     Active Substance: AMIODARONE
     Dosage: 200 MG, DAILY
  11. PREDNISOLONE. [Concomitant]
     Active Substance: PREDNISOLONE
     Dosage: 5 MG, DAILY
  12. NICORANDIL [Concomitant]
     Active Substance: NICORANDIL
     Dosage: 15 MG, DAILY
  13. CILOSTAZOL. [Concomitant]
     Active Substance: CILOSTAZOL
     Dosage: 200 MG, DAILY
     Route: 048

REACTIONS (1)
  - Cardiac failure acute [Fatal]
